FAERS Safety Report 5486087-6 (Version None)
Quarter: 2007Q4

REPORT INFORMATION
  Report Type: 
  Country: None (occurrence: None)
  Receive Date: 20071015
  Receipt Date: 20070927
  Transmission Date: 20080405
  Serious: Yes (Other)
  Sender: FDA-Public Use
  Company Number: CH-PFIZER INC-2007084486

PATIENT
  Age: 28 Year
  Sex: Male

DRUGS (16)
  1. DOXORUBICIN HYDROCHLORIDE [Suspect]
  2. METHYLPREDNISOLONE [Suspect]
  3. VINCRISTINE [Suspect]
  4. ETOPOSIDE [Suspect]
  5. CISPLATIN [Suspect]
  6. CYCLOPHOSPHAMIDE [Suspect]
  7. PREDNISONE [Suspect]
  8. CYTARABINE [Suspect]
  9. RITUXIMAB [Suspect]
     Dosage: DAILY DOSE:375MG/M2-FREQ:4 TIMES WEEKLY
  10. CARMUSTINE [Suspect]
  11. MELPHALAN [Suspect]
  12. FLUDARABINE PHOSPHATE [Suspect]
  13. METHOTREXATE [Suspect]
  14. CICLOSPORIN [Suspect]
  15. CORTICOSTEROIDS [Concomitant]
  16. ALL OTHER THERAPEUTIC PRODUCTS [Concomitant]

REACTIONS (4)
  - ARTHRITIS BACTERIAL [None]
  - HYPOGAMMAGLOBULINAEMIA [None]
  - LYMPHATIC DISORDER [None]
  - UREAPLASMA INFECTION [None]
